FAERS Safety Report 7456152-2 (Version None)
Quarter: 2011Q2

REPORT INFORMATION
  Report Type: 
  Country: None (occurrence: None)
  Receive Date: 20110503
  Receipt Date: 20090219
  Transmission Date: 20111010
  Serious: Yes (Other)
  Sender: FDA-Public Use
  Company Number: US-BAYER-201040748NA

PATIENT
  Age: 54 Year
  Weight: 107.94 kg

DRUGS (28)
  1. PLATELETS [Concomitant]
     Dosage: 20 U, UNK
     Dates: start: 20030520
  2. LOPRESSOR [Concomitant]
     Dosage: UNK
     Route: 042
  3. PLATELETS [Concomitant]
     Dosage: 12 U, UNK
     Dates: start: 20030520
  4. NITROGLYCERIN [Concomitant]
     Dosage: UNK
     Route: 042
     Dates: start: 20030520
  5. CARDIN [METHYLDOPA] [Concomitant]
     Dosage: UNK
     Route: 042
     Dates: start: 20030520
  6. VERSED [Concomitant]
     Dosage: 20 MG, UNK
     Route: 042
  7. MANNITOL [Concomitant]
     Route: 042
  8. TRASYLOL [Suspect]
     Indication: ECHOCARDIOGRAM
     Dosage: 50 ML, UNK
     Dates: start: 20030520
  9. PEPCID AC [Concomitant]
     Dosage: UNK
     Route: 042
     Dates: start: 20030520
  10. CONTRAST MEDIA [Concomitant]
     Dosage: UNK
     Dates: start: 20030520
  11. MOTRIN [Concomitant]
     Dosage: 600 MG, UNK
     Route: 048
  12. FRESH FROZEN PLASMA [Concomitant]
     Dosage: 4 U, UNK
     Dates: start: 20030520
  13. RED BLOOD CELLS [Concomitant]
     Dosage: 2 U, UNK
     Dates: start: 20030520
  14. MORPHINE [Concomitant]
     Dosage: 10 MG, UNK
     Route: 042
  15. TRASYLOL [Suspect]
     Indication: CARDIAC OPERATION
     Dosage: 200 ML, UNK
     Route: 042
     Dates: start: 20030520
  16. TRASYLOL [Suspect]
     Indication: AORTIC SURGERY
  17. RED BLOOD CELLS [Concomitant]
     Dosage: 5 U, UNK
     Dates: start: 20030520
  18. ATIVAN [Concomitant]
     Dosage: UNK
     Route: 042
     Dates: start: 20030520
  19. MAGNESIUM SULFATE [Concomitant]
     Dosage: UNK
     Route: 042
     Dates: start: 20030520
  20. LASIX [Concomitant]
     Dosage: 40 MG, UNK
     Route: 048
  21. INSULIN [INSULIN] [Concomitant]
     Dosage: 10 U, UNK
     Route: 042
  22. PHENYLEPHRINE HCL [Concomitant]
     Dosage: UNK
     Route: 042
     Dates: start: 20030520
  23. PRIMACOR [Concomitant]
     Dosage: UNK
     Route: 042
     Dates: start: 20030520
  24. FRESH FROZEN PLASMA [Concomitant]
     Dosage: 6 U, UNK
     Dates: start: 20030520
  25. EPINEPHRINE [Concomitant]
     Dosage: UNK
     Route: 042
     Dates: start: 20030520
  26. DIPRIVAN [Concomitant]
     Dosage: 30 MG, UNK
     Route: 042
     Dates: start: 20030520
  27. NITROGLYCERIN [Concomitant]
     Dosage: 1 INCH, UNK
     Route: 062
  28. ANCEF [Concomitant]
     Dosage: 2 G, UNK
     Route: 042

REACTIONS (12)
  - ANXIETY [None]
  - MULTI-ORGAN FAILURE [None]
  - PAIN [None]
  - RENAL INJURY [None]
  - STRESS [None]
  - FEAR [None]
  - CEREBROVASCULAR ACCIDENT [None]
  - UNEVALUABLE EVENT [None]
  - RENAL FAILURE [None]
  - INJURY [None]
  - RENAL IMPAIRMENT [None]
  - EMOTIONAL DISORDER [None]
